FAERS Safety Report 6113124-8 (Version None)
Quarter: 2009Q1

REPORT INFORMATION
  Report Type: 
  Country: None (occurrence: None)
  Receive Date: 20090312
  Receipt Date: 20090304
  Transmission Date: 20090719
  Serious: Yes (Hospitalization, Disabling)
  Sender: FDA-Public Use
  Company Number: US-MERCK-0712USA07449

PATIENT
  Age: 72 Year
  Sex: Female
  Weight: 86 kg

DRUGS (4)
  1. FOSAMAX [Suspect]
     Indication: OSTEOPOROSIS
     Route: 048
     Dates: start: 20030801, end: 20060701
  2. FOSAMAX [Suspect]
     Route: 048
     Dates: start: 20030701
  3. [THERAPY UNSPECIFIED] [Concomitant]
     Indication: HYPERTENSION
     Route: 065
     Dates: start: 20000101
  4. BONIVA [Suspect]
     Indication: OSTEOPOROSIS
     Route: 065
     Dates: end: 20060701

REACTIONS (37)
  - ABDOMINAL PAIN [None]
  - CANDIDIASIS [None]
  - CHEST PAIN [None]
  - COMPRESSION FRACTURE [None]
  - DEHYDRATION [None]
  - DRUG TOXICITY [None]
  - DYSPHAGIA [None]
  - DYSPHONIA [None]
  - FATIGUE [None]
  - FIBROMYALGIA [None]
  - GASTROOESOPHAGEAL REFLUX DISEASE [None]
  - GINGIVAL BLEEDING [None]
  - HYPOAESTHESIA ORAL [None]
  - IMPAIRED HEALING [None]
  - IRRITABLE BOWEL SYNDROME [None]
  - JAW CYST [None]
  - MALAISE [None]
  - NON-CARDIAC CHEST PAIN [None]
  - ORAL INFECTION [None]
  - ORAL PAIN [None]
  - OVERDOSE [None]
  - PAIN [None]
  - PAIN IN EXTREMITY [None]
  - PARAESTHESIA [None]
  - PEPTIC ULCER [None]
  - PRESBYOESOPHAGUS [None]
  - PULPITIS DENTAL [None]
  - PYREXIA [None]
  - RESORPTION BONE INCREASED [None]
  - SENSATION OF HEAVINESS [None]
  - SERUM FERRITIN DECREASED [None]
  - SLEEP APNOEA SYNDROME [None]
  - SPINAL COMPRESSION FRACTURE [None]
  - SWOLLEN TONGUE [None]
  - THROMBOSIS [None]
  - TRIGEMINAL NERVE DISORDER [None]
  - VERTIGO [None]
